FAERS Safety Report 7497467-1 (Version None)
Quarter: 2011Q2

REPORT INFORMATION
  Report Type: 
  Country: None (occurrence: None)
  Receive Date: 20110523
  Receipt Date: 20110513
  Transmission Date: 20111010
  Serious: Yes (Hospitalization, Other)
  Sender: FDA-Public Use
  Company Number: ES-ELI_LILLY_AND_COMPANY-ES201105004948

PATIENT
  Sex: Female
  Weight: 65 kg

DRUGS (7)
  1. FUROSEMIDE [Concomitant]
     Dosage: 1.5 DF, QD
     Route: 048
  2. PANTOPRAZOL [Concomitant]
     Indication: GASTRIC DISORDER
     Dosage: 1 DF, QD
     Route: 048
     Dates: start: 20110401
  3. ATORVASTATIN CALCIUM [Concomitant]
     Dosage: 1 DF, QD
     Route: 048
  4. DURAGESIC-100 [Concomitant]
     Indication: ANALGESIC THERAPY
     Dosage: 0.5 DF, 3/W
     Route: 061
     Dates: start: 20110401
  5. FORTEO [Suspect]
     Indication: OSTEOPOROSIS
     Dosage: 20 UG, DAILY (1/D)
     Route: 058
     Dates: start: 20101015, end: 20110428
  6. FERRO SANOL                        /00023514/ [Concomitant]
     Dosage: 1 DF, QD
     Route: 048
     Dates: start: 20110401
  7. MULTAQ [Concomitant]
     Dosage: 1 DF, BID
     Route: 048

REACTIONS (2)
  - BRONCHITIS [None]
  - TACHYCARDIA [None]
